FAERS Safety Report 8062364-X (Version None)
Quarter: 2012Q1

REPORT INFORMATION
  Report Type: 
  Country: None (occurrence: None)
  Receive Date: 20120113
  Receipt Date: 20120103
  Transmission Date: 20120608
  Serious: Yes (Death, Hospitalization, Other)
  Sender: FDA-Public Use
  Company Number: AUR-APL-2010-02163

PATIENT
  Age: 56 Year
  Sex: Male
  Weight: 53 kg

DRUGS (8)
  1. AMITRIPTYLINE HCL [Concomitant]
  2. CITALOPRAM HYDROBROMIDE [Suspect]
     Indication: DEPRESSION
     Dosage: 20 MG (20 MG,1 IN 1 D)
  3. DIAZEPAM [Concomitant]
  4. MADOPAR (BENSERAZIDE HYDROCHLORIDE AND LEVODOPA) [Suspect]
     Dosage: 62.5 MG (62.5 MG,3 IN 1 D) ; 125MG (125 MG,3 IN 1 D)
     Dates: start: 20060101, end: 20090101
  5. MADOPAR (BENSERAZIDE HYDROCHLORIDE AND LEVODOPA) [Suspect]
     Dosage: 62.5 MG (62.5 MG,3 IN 1 D) ; 125MG (125 MG,3 IN 1 D)
     Dates: start: 20060101, end: 20090101
  6. MADOPAR CR (BENSERAZIDE HYDROCHLORIDE AND LEVODOPA) [Suspect]
     Indication: PARKINSON'S DISEASE
     Dosage: 125MG (125 MG,AT NIGHT)
  7. PRAMIPEXOLE DIHYDROCHLORIDE [Suspect]
     Indication: PARKINSON'S DISEASE
     Dates: start: 20090201, end: 20090801
  8. CLOZAPINE [Concomitant]

REACTIONS (12)
  - TREMOR [None]
  - CONDITION AGGRAVATED [None]
  - OVERDOSE [None]
  - ASPHYXIA [None]
  - DRUG INEFFECTIVE [None]
  - PSYCHOTIC DISORDER [None]
  - COMPLETED SUICIDE [None]
  - DEPRESSED MOOD [None]
  - AGGRESSION [None]
  - ANXIETY [None]
  - HALLUCINATION, AUDITORY [None]
  - PARANOIA [None]
